FAERS Safety Report 24755434 (Version 6)
Quarter: 2025Q1

REPORT INFORMATION
  Report Type: Spontaneous
  Country: JP (occurrence: JP)
  Receive Date: 20241219
  Receipt Date: 20250304
  Transmission Date: 20250408
  Serious: Yes (Hospitalization)
  Sender: DERMAVANT SCIENCES
  Company Number: JP-JT-EVA202402220Dermavant Sciences Inc.

PATIENT
  Age: 30 Year
  Sex: Female
  Weight: 49 kg

DRUGS (9)
  1. VTAMA [Suspect]
     Active Substance: TAPINAROF
     Indication: Dermatitis atopic
     Route: 003
     Dates: start: 20241106, end: 20241202
  2. VTAMA [Suspect]
     Active Substance: TAPINAROF
     Indication: Dermatitis atopic
     Route: 003
  3. VTAMA [Suspect]
     Active Substance: TAPINAROF
     Indication: Dermatitis atopic
     Route: 003
  4. RUPAFIN [Concomitant]
     Active Substance: RUPATADINE FUMARATE
     Route: 048
     Dates: start: 20240729
  5. MYSER [Concomitant]
     Dosage: 1 2
     Route: 003
     Dates: start: 20240729
  6. GLYCOSAMINOGLYCANS [Concomitant]
     Active Substance: GLYCOSAMINOGLYCANS
     Indication: Dry skin prophylaxis
     Route: 003
     Dates: start: 20240729
  7. PATANOL [Concomitant]
     Active Substance: OLOPATADINE HYDROCHLORIDE
     Route: 047
     Dates: start: 20240729
  8. TOPSYM [Concomitant]
     Route: 003
     Dates: start: 20240729
  9. TOPSYM [Concomitant]
     Route: 003
     Dates: start: 20240729

REACTIONS (3)
  - Erythema multiforme [Recovered/Resolved]
  - Dermatitis [Recovered/Resolved]
  - Dermatitis contact [Recovered/Resolved]

NARRATIVE: CASE EVENT DATE: 20241125
